FAERS Safety Report 8985908 (Version 1)
Quarter: 2012Q4

REPORT INFORMATION
  Report Type: 
  Country: GB (occurrence: GB)
  Receive Date: 20121226
  Receipt Date: 20121226
  Transmission Date: 20130627
  Serious: Yes (Other)
  Sender: FDA-Public Use
  Company Number: GB-JNJFOC-20121210325

PATIENT
  Age: 20 Year
  Sex: Female
  Weight: 83 kg

DRUGS (4)
  1. IBUPROFEN [Suspect]
     Indication: PRODUCT USED FOR UNKNOWN INDICATION
     Route: 065
     Dates: start: 20121205
  2. CHLORPHENAMINE [Concomitant]
     Route: 065
     Dates: start: 20121205
  3. LEVONORGESTREL [Concomitant]
     Route: 065
     Dates: start: 20121129, end: 20121130
  4. METRONIDAZOLE [Concomitant]
     Route: 065
     Dates: start: 20121029, end: 20121030

REACTIONS (3)
  - Skin discolouration [Unknown]
  - Pruritus [Unknown]
  - Rash [Unknown]
